FAERS Safety Report 9254644 (Version 3)
Quarter: 2013Q3

REPORT INFORMATION
  Report Type: Spontaneous
  Country: US (occurrence: US)
  Receive Date: 20130425
  Receipt Date: 20130930
  Transmission Date: 20140515
  Serious: Yes (Hospitalization, Disabling, Other)
  Sender: FDA-Public Use
  Company Number: US-ASTRAZENECA-2013SE27772

PATIENT
  Age: 39 Year
  Sex: Female
  Weight: 54.4 kg

DRUGS (27)
  1. NEXIUM [Suspect]
     Indication: GASTROOESOPHAGEAL REFLUX DISEASE
     Route: 048
     Dates: start: 2005, end: 2012
  2. NEXIUM [Suspect]
     Indication: GASTROOESOPHAGEAL REFLUX DISEASE
     Route: 048
     Dates: start: 20051223
  3. CYMBALTA [Concomitant]
  4. TUMS [Concomitant]
     Indication: GASTROOESOPHAGEAL REFLUX DISEASE
     Dates: start: 2005
  5. BEANO [Concomitant]
     Indication: GASTROOESOPHAGEAL REFLUX DISEASE
     Dates: start: 2005
  6. B12 [Concomitant]
  7. VITAMIN D [Concomitant]
  8. CALCIUM [Concomitant]
  9. POTASSIUM [Concomitant]
  10. LORTAB [Concomitant]
     Dosage: 10/500, TID
     Dates: start: 20120820
  11. SUMATRIPTAN [Concomitant]
     Dosage: 50MG
     Dates: start: 20120517
  12. COUMADIN [Concomitant]
     Dates: start: 20120306
  13. COUMADIN [Concomitant]
     Dosage: 12.5MG
  14. LOMOTIL [Concomitant]
     Dosage: 1 TAB Q6H
  15. ALPRAZOLAM [Concomitant]
     Dates: start: 20120228
  16. IMITREX [Concomitant]
     Dosage: 50MG
     Dates: start: 20120305
  17. PREDNISONE [Concomitant]
     Dosage: 1MG
     Dates: start: 20060513
  18. EFFEXOR XR [Concomitant]
     Dosage: 75 MG
     Dates: start: 20051116
  19. WELLBUTRIN XL [Concomitant]
     Dosage: 150MG
     Dates: start: 20051130
  20. METFORMIN [Concomitant]
     Dosage: 500MG
     Dates: start: 20051214
  21. ZOLOFT [Concomitant]
     Dosage: 50 MG
     Dates: start: 20051223
  22. DICYCLOMINE [Concomitant]
     Dosage: 20 MG
     Dates: start: 20051228
  23. PROTONIX [Concomitant]
     Dates: start: 20060104
  24. PROMETHAZINE [Concomitant]
     Dosage: 25 MG
     Dates: start: 20051228
  25. METOCLOPRAMIDE [Concomitant]
     Dosage: 10 MG
     Dates: start: 20060104
  26. MEPHYTON [Concomitant]
     Dosage: 5MG
     Dates: start: 20060523
  27. PREVACID [Concomitant]

REACTIONS (22)
  - Convulsion [Unknown]
  - Diabetes mellitus [Unknown]
  - Spinal cord disorder [Unknown]
  - Drug withdrawal syndrome [Unknown]
  - Short-bowel syndrome [Unknown]
  - Depression [Unknown]
  - Intestinal obstruction [Unknown]
  - Small intestinal obstruction [Unknown]
  - Bone disorder [Unknown]
  - Osteoporosis [Unknown]
  - Anxiety [Unknown]
  - Ankle fracture [Unknown]
  - Arthritis [Unknown]
  - Back pain [Unknown]
  - Chronic obstructive pulmonary disease [Unknown]
  - Calcium deficiency [Unknown]
  - Musculoskeletal pain [Unknown]
  - Migraine [Unknown]
  - Post-traumatic stress disorder [Unknown]
  - Sleep disorder [Unknown]
  - Vitamin D deficiency [Unknown]
  - Malaise [Unknown]
